FAERS Safety Report 8357646-8 (Version None)
Quarter: 2012Q2

REPORT INFORMATION
  Report Type: 
  Country: None (occurrence: None)
  Receive Date: 20120514
  Receipt Date: 20120501
  Transmission Date: 20120825
  Serious: No
  Sender: FDA-Public Use
  Company Number: US-BAYER-2012-043039

PATIENT
  Age: 80 Year
  Sex: Male

DRUGS (2)
  1. LISINOPRIL [Concomitant]
  2. NAPROXEN SODIUM [Suspect]
     Indication: SLEEP DISORDER THERAPY
     Dosage: 2 U, QOD
     Route: 048
     Dates: start: 20120428

REACTIONS (1)
  - THERAPEUTIC RESPONSE UNEXPECTED [None]
